FAERS Safety Report 13321489 (Version 1)
Quarter: 2017Q1

REPORT INFORMATION
  Report Type: Spontaneous
  Country: AU (occurrence: AU)
  Receive Date: 20170310
  Receipt Date: 20170310
  Transmission Date: 20170428
  Serious: Yes (Life-Threatening)
  Sender: FDA-Public Use
  Company Number: AU-009507513-1703AUS002964

PATIENT
  Age: 10 Year
  Sex: Male

DRUGS (1)
  1. SINGULAIR [Suspect]
     Active Substance: MONTELUKAST SODIUM
     Dosage: 1 DOSE UNSPECIFED DAILY
     Route: 048
     Dates: start: 20100610, end: 20130610

REACTIONS (3)
  - Intentional self-injury [Unknown]
  - Suicide attempt [Unknown]
  - Anxiety [Unknown]

NARRATIVE: CASE EVENT DATE: 20100910
